FAERS Safety Report 18269776 (Version 1)
Quarter: 2020Q3

REPORT INFORMATION
  Report Type: Spontaneous
  Country: US (occurrence: US)
  Receive Date: 20200915
  Receipt Date: 20200915
  Transmission Date: 20201103
  Serious: Yes (Other)
  Sender: FDA-Public Use
  Company Number: US-MYLANLABS-2020M1078454

PATIENT
  Sex: Female

DRUGS (19)
  1. TOPIRAMATE. [Suspect]
     Active Substance: TOPIRAMATE
     Indication: PHELAN-MCDERMID SYNDROME
  2. VALPROIC ACID. [Suspect]
     Active Substance: VALPROIC ACID
     Indication: PARTIAL SEIZURES
     Dosage: UNK
     Route: 065
  3. MECASERMIN [Suspect]
     Active Substance: MECASERMIN
     Indication: PHELAN-MCDERMID SYNDROME
  4. PERAMPANEL [Suspect]
     Active Substance: PERAMPANEL
     Indication: PHELAN-MCDERMID SYNDROME
  5. LACOSAMIDE. [Suspect]
     Active Substance: LACOSAMIDE
     Indication: PARTIAL SEIZURES
     Dosage: UNK
     Route: 065
  6. CANNABIDIOL [Suspect]
     Active Substance: CANNABIDIOL
     Indication: PARTIAL SEIZURES
     Dosage: UNK
     Route: 065
  7. LACOSAMIDE. [Suspect]
     Active Substance: LACOSAMIDE
     Indication: PHELAN-MCDERMID SYNDROME
  8. LAMOTRIGINE. [Suspect]
     Active Substance: LAMOTRIGINE
     Indication: PARTIAL SEIZURES
     Dosage: UNK
     Route: 065
  9. LAMOTRIGINE. [Suspect]
     Active Substance: LAMOTRIGINE
     Indication: PHELAN-MCDERMID SYNDROME
  10. RUFINAMIDE [Suspect]
     Active Substance: RUFINAMIDE
     Indication: PHELAN-MCDERMID SYNDROME
  11. MECASERMIN [Suspect]
     Active Substance: MECASERMIN
     Indication: BEHAVIOUR DISORDER
  12. TOPIRAMATE. [Suspect]
     Active Substance: TOPIRAMATE
     Indication: PARTIAL SEIZURES
     Dosage: UNK
     Route: 065
  13. PERAMPANEL [Suspect]
     Active Substance: PERAMPANEL
     Indication: PARTIAL SEIZURES
     Dosage: UNK
     Route: 065
  14. CLONAZEPAM. [Suspect]
     Active Substance: CLONAZEPAM
     Indication: PARTIAL SEIZURES
     Dosage: UNK
     Route: 065
  15. CLONAZEPAM. [Suspect]
     Active Substance: CLONAZEPAM
     Indication: PHELAN-MCDERMID SYNDROME
  16. RUFINAMIDE [Suspect]
     Active Substance: RUFINAMIDE
     Indication: PARTIAL SEIZURES
     Dosage: UNK
     Route: 065
  17. VALPROIC ACID. [Suspect]
     Active Substance: VALPROIC ACID
     Indication: PHELAN-MCDERMID SYNDROME
  18. CANNABIDIOL [Suspect]
     Active Substance: CANNABIDIOL
     Indication: PHELAN-MCDERMID SYNDROME
  19. MECASERMIN [Suspect]
     Active Substance: MECASERMIN
     Indication: COGNITIVE DISORDER
     Dosage: UNK
     Route: 065

REACTIONS (1)
  - Drug ineffective [Unknown]
